FAERS Safety Report 7245259-0 (Version None)
Quarter: 2011Q1

REPORT INFORMATION
  Report Type: 
  Country: None (occurrence: None)
  Receive Date: 20110126
  Receipt Date: 20110114
  Transmission Date: 20110831
  Serious: Yes (Life-Threatening, Hospitalization)
  Sender: FDA-Public Use
  Company Number: NL-MEDIMMUNE-MEDI-0012305

PATIENT

DRUGS (2)
  1. SYNAGIS [Suspect]
     Dates: start: 20110114
  2. SYNAGIS [Suspect]
     Route: 030
     Dates: start: 20101217, end: 20101217

REACTIONS (4)
  - CARDIAC ARREST [None]
  - RESPIRATORY ARREST [None]
  - HAEMOGLOBIN DECREASED [None]
  - RESPIRATORY SYNCYTIAL VIRUS INFECTION [None]
